FAERS Safety Report 9886134 (Version 4)
Quarter: 2014Q2

REPORT INFORMATION
  Report Type: Spontaneous
  Country: JP (occurrence: JP)
  Receive Date: 20140210
  Receipt Date: 20140507
  Transmission Date: 20141212
  Serious: Yes (Other)
  Sender: FDA-Public Use
  Company Number: JP-PFIZER INC-2014034694

PATIENT
  Age: 71 Year
  Sex: Female

DRUGS (1)
  1. SOLU-MEDROL [Suspect]
     Dosage: 1000 MG DAILY
     Route: 042
     Dates: start: 20140203, end: 20140205

REACTIONS (1)
  - Encephalitis viral [Recovered/Resolved]
